FAERS Safety Report 4999826-5 (Version None)
Quarter: 2006Q2

REPORT INFORMATION
  Report Type: 
  Country: None (occurrence: None)
  Receive Date: 20060511
  Receipt Date: 20060508
  Transmission Date: 20061013
  Serious: Yes (Life-Threatening)
  Sender: FDA-Public Use
  Company Number: 2006AP02140

PATIENT

DRUGS (4)
  1. OMEPRAL [Suspect]
     Indication: GASTRIC ULCER
     Route: 048
     Dates: start: 20060314, end: 20060325
  2. OMEPRAL [Suspect]
     Route: 048
     Dates: start: 20060428
  3. ULCERLMIN [Concomitant]
     Indication: GASTRIC ULCER
     Route: 048
     Dates: start: 20060314, end: 20060325
  4. INSULIN INJECTION [Concomitant]
     Indication: DIABETES MELLITUS
     Dosage: THE PATIENT RECEIVED INSULIN INJECTION FROM 39 YEARS TO 52 YEARS OLD.

REACTIONS (2)
  - HYPOGLYCAEMIA [None]
  - LOSS OF CONSCIOUSNESS [None]
